FAERS Safety Report 11599103 (Version 1)
Quarter: 2015Q4

REPORT INFORMATION
  Report Type: Spontaneous
  Country: FR (occurrence: FR)
  Receive Date: 20151006
  Receipt Date: 20151006
  Transmission Date: 20160304
  Serious: Yes (Other)
  Sender: FDA-Public Use
  Company Number: FR-TAKEDA-2015TUS013544

PATIENT
  Sex: Female

DRUGS (1)
  1. ADENURIC [Suspect]
     Active Substance: FEBUXOSTAT
     Indication: HYPERURICAEMIA
     Dosage: UNK
     Route: 048

REACTIONS (7)
  - Extrasystoles [Unknown]
  - Influenza like illness [Unknown]
  - Cardiac discomfort [Unknown]
  - Atrial fibrillation [Unknown]
  - Dyspnoea [Unknown]
  - Abdominal distension [Unknown]
  - Pain in extremity [Unknown]
